FAERS Safety Report 5521556-1 (Version None)
Quarter: 2007Q4

REPORT INFORMATION
  Report Type: 
  Country: None (occurrence: None)
  Receive Date: 20071120
  Receipt Date: 20071115
  Transmission Date: 20080405
  Serious: Yes (Hospitalization)
  Sender: FDA-Public Use
  Company Number: GBWYE116018OCT04

PATIENT
  Age: 33 Year
  Sex: Female

DRUGS (4)
  1. IBUPROFEN TABLETS [Suspect]
     Dosage: UNKNOWN
  2. ACETAMINOPHEN [Suspect]
     Dosage: UNKNOWN
  3. NONE [Concomitant]
  4. AMITRIPTYLINE [Suspect]
     Indication: DEPRESSION
     Dosage: UNKNOWN

REACTIONS (9)
  - ACUTE RESPIRATORY DISTRESS SYNDROME [None]
  - CARDIAC ARREST [None]
  - GRAND MAL CONVULSION [None]
  - HAEMOPHILUS INFECTION [None]
  - INTENTIONAL OVERDOSE [None]
  - LOSS OF CONSCIOUSNESS [None]
  - PNEUMOTHORAX [None]
  - STREPTOCOCCAL INFECTION [None]
  - TACHYCARDIA [None]
